FAERS Safety Report 25988341 (Version 1)
Quarter: 2025Q4

REPORT INFORMATION
  Report Type: Spontaneous
  Country: US (occurrence: US)
  Receive Date: 20251103
  Receipt Date: 20251103
  Transmission Date: 20260118
  Serious: No
  Sender: AMGEN
  Company Number: US-AMGEN-USASP2025214696

PATIENT
  Age: 56 Year
  Sex: Female

DRUGS (12)
  1. OTEZLA [Suspect]
     Active Substance: APREMILAST
     Indication: Psoriasis
     Dosage: 30 MILLIGRAM, BID
     Route: 048
     Dates: start: 20240321, end: 20250728
  2. IRON [Concomitant]
     Active Substance: IRON
  3. OXYCODONE [Concomitant]
     Active Substance: OXYCODONE
  4. RIZATRIPTAN [Concomitant]
     Active Substance: RIZATRIPTAN
  5. NURTEC ODT [Concomitant]
     Active Substance: RIMEGEPANT SULFATE
  6. TIZANIDINE [Concomitant]
     Active Substance: TIZANIDINE
  7. ONDANSETRON [Concomitant]
     Active Substance: ONDANSETRON
  8. ESTRADIOL [Concomitant]
     Active Substance: ESTRADIOL
  9. ALENDRONATE [Concomitant]
     Active Substance: ALENDRONATE SODIUM
  10. MYRBETRIQ [Concomitant]
     Active Substance: MIRABEGRON
  11. LINZESS [Concomitant]
     Active Substance: LINACLOTIDE
  12. GABAPENTIN [Concomitant]
     Active Substance: GABAPENTIN

REACTIONS (1)
  - Constipation [Recovered/Resolved]

NARRATIVE: CASE EVENT DATE: 20250728
